FAERS Safety Report 7845248-9 (Version None)
Quarter: 2011Q4

REPORT INFORMATION
  Report Type: 
  Country: None (occurrence: None)
  Receive Date: 20111025
  Receipt Date: 20111021
  Transmission Date: 20120403
  Serious: Yes (Other)
  Sender: FDA-Public Use
  Company Number: JP-BAYER-2011-102575

PATIENT
  Sex: Female

DRUGS (2)
  1. ASPIRIN [Suspect]
     Route: 048
  2. PLAVIX [Suspect]
     Route: 048

REACTIONS (3)
  - HAEMORRHAGE SUBCUTANEOUS [None]
  - EPISTAXIS [None]
  - DIZZINESS [None]
